FAERS Safety Report 11240537 (Version 8)
Quarter: 2016Q2

REPORT INFORMATION
  Report Type: Report from Study
  Country: CA (occurrence: CA)
  Receive Date: 20150706
  Receipt Date: 20160523
  Transmission Date: 20160815
  Serious: Yes (Other)
  Sender: FDA-Public Use
  Company Number: PHHY2012CA123186

PATIENT
  Age: 69 Year
  Sex: Male
  Weight: 71.66 kg

DRUGS (8)
  1. SANDOSTATIN LAR DEPOT [Suspect]
     Active Substance: OCTREOTIDE ACETATE
     Dosage: 60 MG, QMO (EVERY 4 WEEKS)
     Route: 030
  2. SANDOSTATIN [Suspect]
     Active Substance: OCTREOTIDE ACETATE
     Indication: NEUROENDOCRINE TUMOUR
     Dosage: 250 UG, TID (FOR TWO WEEKS)
     Route: 058
     Dates: start: 20121102, end: 201211
  3. SANDOSTATIN LAR DEPOT [Suspect]
     Active Substance: OCTREOTIDE ACETATE
     Dosage: 30 MG, QMO (EVERY 4 WEEKS)
     Route: 030
  4. SANDOSTATIN LAR DEPOT [Suspect]
     Active Substance: OCTREOTIDE ACETATE
     Indication: NEUROENDOCRINE TUMOUR
     Dosage: 20 MG, QMO (EVERY 4 WEEKS)
     Route: 030
     Dates: start: 20121108
  5. ONDANSETRON [Concomitant]
     Active Substance: ONDANSETRON
     Indication: PRODUCT USED FOR UNKNOWN INDICATION
     Dosage: 8 MG, UNK
     Route: 065
  6. CARVEDILOL. [Concomitant]
     Active Substance: CARVEDILOL
     Indication: PRODUCT USED FOR UNKNOWN INDICATION
     Route: 065
  7. AFINITOR [Suspect]
     Active Substance: EVEROLIMUS
     Indication: NEUROENDOCRINE TUMOUR
     Dosage: 10 MG, QID
     Route: 048
     Dates: start: 20121108
  8. SANDOSTATIN LAR DEPOT [Suspect]
     Active Substance: OCTREOTIDE ACETATE
     Dosage: 40 MG,QMO (EVERY 4 WEEKS)
     Route: 030

REACTIONS (35)
  - Hyperphagia [Unknown]
  - Hyperhidrosis [Unknown]
  - Feeling abnormal [Unknown]
  - Peripheral swelling [Unknown]
  - Blood pressure decreased [Unknown]
  - Psychiatric symptom [Unknown]
  - Thirst [Unknown]
  - Pollakiuria [Unknown]
  - Influenza [Unknown]
  - Joint swelling [Unknown]
  - Dyspnoea [Recovered/Resolved]
  - Abdominal discomfort [Unknown]
  - Pain [Recovered/Resolved]
  - Blood pressure increased [Unknown]
  - Neoplasm [Not Recovered/Not Resolved]
  - Productive cough [Unknown]
  - Pallor [Unknown]
  - Blood pressure systolic increased [Unknown]
  - Constipation [Recovered/Resolved]
  - Therapeutic response decreased [Unknown]
  - Lung infection [Unknown]
  - Weight decreased [Unknown]
  - Injection site pain [Recovered/Resolved]
  - Pulmonary congestion [Not Recovered/Not Resolved]
  - Blood pressure orthostatic decreased [Unknown]
  - Nausea [Unknown]
  - Malignant neoplasm progression [Not Recovered/Not Resolved]
  - Cough [Unknown]
  - Fluid retention [Unknown]
  - Flatulence [Recovering/Resolving]
  - Abdominal pain [Unknown]
  - Dyspnoea [Unknown]
  - Cholelithiasis [Unknown]
  - Gait disturbance [Unknown]
  - Diarrhoea [Unknown]

NARRATIVE: CASE EVENT DATE: 2015
